FAERS Safety Report 9130054 (Version 1)
Quarter: 2013Q1

REPORT INFORMATION
  Report Type: Spontaneous
  Country: US (occurrence: US)
  Receive Date: 20130228
  Receipt Date: 20130228
  Transmission Date: 20140127
  Serious: No
  Sender: FDA-Public Use
  Company Number: GB-ASTRAZENECA-2013SE06958

PATIENT
  Age: 49 Year
  Sex: Female

DRUGS (1)
  1. LISINOPRIL [Suspect]
     Route: 048

REACTIONS (5)
  - Anxiety [Unknown]
  - Back pain [Unknown]
  - Pain in extremity [Unknown]
  - Blood pressure increased [Unknown]
  - Arthralgia [Unknown]
